FAERS Safety Report 15417973 (Version 1)
Quarter: 2018Q3

REPORT INFORMATION
  Report Type: Other
  Country: US (occurrence: US)
  Receive Date: 20180924
  Receipt Date: 20180924
  Transmission Date: 20181010
  Serious: Yes (Hospitalization)
  Sender: FDA-Public Use
  Company Number: US-SAPTALIS PHARMACEUTICALS LLC-2055254

PATIENT
  Age: 39 Year
  Sex: Female

DRUGS (4)
  1. ALPRAZOLAM. [Suspect]
     Active Substance: ALPRAZOLAM
     Route: 065
  2. LORAZEPAM. [Suspect]
     Active Substance: LORAZEPAM
     Indication: BACK PAIN
     Route: 065
  3. DIPHENHYDRAMINE. [Suspect]
     Active Substance: DIPHENHYDRAMINE
     Route: 065
  4. OXYCODONE [Suspect]
     Active Substance: OXYCODONE
     Route: 065

REACTIONS (6)
  - Lethargy [Recovering/Resolving]
  - Somnolence [Recovering/Resolving]
  - Leukocytosis [Unknown]
  - Product use in unapproved indication [Unknown]
  - Loss of consciousness [Recovering/Resolving]
  - Compartment syndrome [Recovered/Resolved]
